FAERS Safety Report 7812216-2 (Version None)
Quarter: 2011Q4

REPORT INFORMATION
  Report Type: 
  Country: None (occurrence: None)
  Receive Date: 20111013
  Receipt Date: 20110805
  Transmission Date: 20120403
  Serious: No
  Sender: FDA-Public Use
  Company Number: US-NOVEN-11US002928

PATIENT
  Sex: Male

DRUGS (3)
  1. ANALGESICS [Concomitant]
  2. FENTANYL [Suspect]
     Dosage: 25 UG/HR, AS NEEDED
     Route: 062
  3. FENTANYL [Suspect]
     Indication: PAIN
     Dosage: 50 UG/HR, AS NEEDED
     Route: 062

REACTIONS (1)
  - INADEQUATE ANALGESIA [None]
